FAERS Safety Report 7063753-2 (Version None)
Quarter: 2010Q4

REPORT INFORMATION
  Report Type: 
  Country: None (occurrence: None)
  Receive Date: 20101026
  Receipt Date: 20100820
  Transmission Date: 20110411
  Serious: No
  Sender: FDA-Public Use
  Company Number: US-ABBOTT-10P-163-0665945-00

PATIENT
  Age: 34 Year
  Sex: Female

DRUGS (3)
  1. LUPRON DEPOT [Suspect]
     Indication: ENDOMETRIOSIS
     Dosage: ONCE A MONTH X 4 INJECTIONS TOTAL
     Dates: start: 20100429
  2. FLONASE [Concomitant]
     Indication: PRODUCT USED FOR UNKNOWN INDICATION
  3. AGESTIN ADBACK THERAPY [Concomitant]
     Indication: PRODUCT USED FOR UNKNOWN INDICATION

REACTIONS (5)
  - ARTHRALGIA [None]
  - MENORRHAGIA [None]
  - METRORRHAGIA [None]
  - MOOD SWINGS [None]
  - NIGHT SWEATS [None]
